FAERS Safety Report 7108535-8 (Version None)
Quarter: 2010Q4

REPORT INFORMATION
  Report Type: 
  Country: None (occurrence: None)
  Receive Date: 20101117
  Receipt Date: 20100820
  Transmission Date: 20110411
  Serious: No
  Sender: FDA-Public Use
  Company Number: A0877002A

PATIENT
  Age: 57 Year
  Sex: Male

DRUGS (2)
  1. VOTRIENT [Suspect]
     Dosage: 800MG PER DAY
     Route: 048
     Dates: start: 20100601
  2. MULTIPLE MEDICATIONS [Concomitant]

REACTIONS (3)
  - DIARRHOEA [None]
  - HAIR COLOUR CHANGES [None]
  - PAIN IN EXTREMITY [None]
